FAERS Safety Report 13250964 (Version 2)
Quarter: 2018Q1

REPORT INFORMATION
  Report Type: Spontaneous
  Country: US (occurrence: US)
  Receive Date: 20170220
  Receipt Date: 20180313
  Transmission Date: 20180508
  Serious: No
  Sender: FDA-Public Use
  Company Number: US-TEVA-731511ACC

PATIENT
  Sex: Female

DRUGS (1)
  1. AMOXICILLIN FOR ORAL SUSPENSION USP [Suspect]
     Active Substance: AMOXICILLIN
     Indication: INFECTION
     Dosage: 400 MG/5 ML
     Route: 048

REACTIONS (1)
  - Blood glucose increased [Recovered/Resolved]
